FAERS Safety Report 24021649 (Version 1)
Quarter: 2024Q2

REPORT INFORMATION
  Report Type: Report from Study
  Country: CA (occurrence: CA)
  Receive Date: 20240627
  Receipt Date: 20240627
  Transmission Date: 20240716
  Serious: No
  Sender: FDA-Public Use
  Company Number: CA-ROCHE-3576923

PATIENT
  Sex: Male

DRUGS (1)
  1. COLUMVI [Suspect]
     Active Substance: GLOFITAMAB-GXBM
     Indication: Mantle cell lymphoma
     Dosage: CYCLE 1 DAY 8 - 2.5 MG, CYCLE 1D15 - 10MG. CYCLE 2 AND ONWARDS 30 MG Q 21 DAY. IN COMBINATION WITH?O
     Route: 042
     Dates: start: 20240523

REACTIONS (2)
  - Off label use [Unknown]
  - No adverse event [Unknown]
